FAERS Safety Report 4788469-4 (Version None)
Quarter: 2005Q4

REPORT INFORMATION
  Report Type: 
  Country: None (occurrence: None)
  Receive Date: 20051005
  Receipt Date: 20051004
  Transmission Date: 20060501
  Serious: Yes (Death, Other)
  Sender: FDA-Public Use
  Company Number: JP-SANOFI-SYNTHELABO-F01200502027

PATIENT
  Sex: Female
  Weight: 47 kg

DRUGS (3)
  1. OXALIPLATIN [Suspect]
     Indication: COLON CANCER
     Dosage: 85MG/BODY=62MG/M2 IN INFUSION ON DAY 1
     Route: 042
     Dates: start: 20050905, end: 20050905
  2. FLUOROURACIL [Suspect]
     Dosage: 400MG/BODY =292MG/M2 IN BOLUS THEN 600MG/BODY=438MG/M2 AS CONTINUOUS INFUSION ON D1+2
     Route: 042
     Dates: start: 20050905, end: 20050906
  3. CALCIUM LEVOFOLINATE [Suspect]
     Dosage: 100MG/BODY=73MG/M2 AS INFUSION ON DAYS 1 AND 2
     Route: 042
     Dates: start: 20050905, end: 20050906

REACTIONS (3)
  - HAEMOGLOBIN DECREASED [None]
  - INTESTINAL OBSTRUCTION [None]
  - LARGE INTESTINAL OBSTRUCTION [None]
